FAERS Safety Report 6987536-4 (Version None)
Quarter: 2010Q3

REPORT INFORMATION
  Report Type: 
  Country: None (occurrence: None)
  Receive Date: 20100916
  Receipt Date: 20100907
  Transmission Date: 20110219
  Serious: No
  Sender: FDA-Public Use
  Company Number: US-PFIZER INC-2010113104

PATIENT
  Sex: Female
  Weight: 89.4 kg

DRUGS (17)
  1. LIPITOR [Suspect]
     Indication: BLOOD CHOLESTEROL INCREASED
     Dosage: 80 MG, 1X/DAY
     Route: 048
     Dates: start: 20100729
  2. ADVAIR DISKUS 100/50 [Concomitant]
     Indication: ASTHMA
     Dosage: 250/50
  3. XOPENEX [Concomitant]
     Indication: ASTHMA
     Dosage: UNK
  4. DICLOFENAC SODIUM [Concomitant]
     Indication: BACK PAIN
     Dosage: 75 MG, 3X/DAY
  5. ACETYLSALICYLIC ACID [Concomitant]
     Indication: CARDIAC DISORDER
     Dosage: 81 MG DAILY
     Route: 048
  6. METOPROLOL TARTRATE [Concomitant]
     Indication: HYPERTENSION
     Dosage: 50 MG, 2X/DAY
  7. LISINOPRIL [Concomitant]
     Indication: HYPERTENSION
     Dosage: 10 MG, UNK
  8. TEGRETOL [Concomitant]
     Indication: HYPERTENSION
     Dosage: UNK MG, 2X/DAY
     Route: 048
  9. VITAMIN B COMPLEX CAP [Concomitant]
     Indication: VITAMIN B COMPLEX DEFICIENCY
     Dosage: UNK
  10. VITAMIN A [Concomitant]
     Indication: VITAMIN A DEFICIENCY
     Dosage: 10000 IU, 3X/DAY
  11. VITAMIN E [Concomitant]
     Indication: VITAMIN E DEFICIENCY
     Dosage: 400 IU, 3X/DAY
  12. CALCIUM [Concomitant]
     Indication: CALCIUM DEFICIENCY
     Dosage: 600 MG, 3X/DAY
  13. LOVAZA [Concomitant]
     Dosage: 1000 MG, UNK
  14. PLAVIX [Concomitant]
     Dosage: 75 MG, 2X/DAY
     Route: 048
  15. TEMAZEPAM [Concomitant]
     Dosage: 30 MG, 1X/DAY
  16. CLONAZEPAM [Concomitant]
     Dosage: 1000 UG, UNK
  17. MAGNESIUM [Concomitant]
     Indication: MAGNESIUM DEFICIENCY
     Dosage: 500 MG, 1X/DAY

REACTIONS (1)
  - FATIGUE [None]
